FAERS Safety Report 10431034 (Version 1)
Quarter: 2014Q3

REPORT INFORMATION
  Report Type: Spontaneous
  Country: US (occurrence: None)
  Receive Date: 20140902
  Receipt Date: 20140902
  Transmission Date: 20150326
  Serious: Yes (Hospitalization, Other)
  Sender: FDA-Public Use
  Company Number: 2014AP004253

PATIENT
  Age: 49 Year
  Sex: Female

DRUGS (1)
  1. METFORMIN HYDROCHLORIDE. [Suspect]
     Active Substance: METFORMIN HYDROCHLORIDE
     Indication: TYPE 2 DIABETES MELLITUS

REACTIONS (9)
  - Lactic acidosis [None]
  - Hypotension [None]
  - Haemodialysis [None]
  - Pulseless electrical activity [None]
  - Shock [None]
  - Tachypnoea [None]
  - Tachycardia [None]
  - Blood glucose decreased [None]
  - Hypothermia [None]
